FAERS Safety Report 14689657 (Version 1)
Quarter: 2018Q1

REPORT INFORMATION
  Report Type: Spontaneous
  Country: US (occurrence: US)
  Receive Date: 20180327
  Receipt Date: 20180327
  Transmission Date: 20180509
  Serious: Yes (Other)
  Sender: FDA-Public Use
  Company Number: None

PATIENT
  Age: 28 Year
  Sex: Male
  Weight: 70.65 kg

DRUGS (7)
  1. GABBAPENTIN [Suspect]
     Active Substance: GABAPENTIN
     Indication: NEURALGIA
     Dates: start: 20180102, end: 20180114
  2. MELLOTONIN [Concomitant]
  3. CYCLOBENZAPRINE. [Concomitant]
     Active Substance: CYCLOBENZAPRINE
  4. SEROQUEL [Concomitant]
     Active Substance: QUETIAPINE FUMARATE
  5. MALAXICAM [Concomitant]
  6. ZOLOFT [Concomitant]
     Active Substance: SERTRALINE HYDROCHLORIDE
  7. TRAMADOL. [Concomitant]
     Active Substance: TRAMADOL

REACTIONS (6)
  - Product taste abnormal [None]
  - Generalised tonic-clonic seizure [None]
  - Drug ineffective [None]
  - Memory impairment [None]
  - Coordination abnormal [None]
  - Headache [None]

NARRATIVE: CASE EVENT DATE: 20180114
